FAERS Safety Report 22384913 (Version 1)
Quarter: 2023Q2

REPORT INFORMATION
  Report Type: Report from Study
  Country: US (occurrence: US)
  Receive Date: 20230530
  Receipt Date: 20230530
  Transmission Date: 20230722
  Serious: Yes (Other)
  Sender: FDA-Public Use
  Company Number: US-MYLANLABS-2023M1055973

PATIENT
  Age: 30 Year
  Sex: Male

DRUGS (2)
  1. TACROLIMUS [Suspect]
     Active Substance: TACROLIMUS
     Indication: Prophylaxis against graft versus host disease
     Dosage: UNK, STARTING ON DAY -3 OF HSCT AND SCHEDULED FOR 6 MONTHS
     Route: 065
  2. METHOTREXATE [Suspect]
     Active Substance: METHOTREXATE
     Indication: Prophylaxis against graft versus host disease
     Dosage: 5 MILLIGRAM/SQ. METER (ON DAYS +1, +3, +6 AND +11 OF HSCT)
     Route: 042

REACTIONS (1)
  - Drug ineffective [Unknown]
